FAERS Safety Report 8259836-1 (Version None)
Quarter: 2012Q2

REPORT INFORMATION
  Report Type: 
  Country: None (occurrence: None)
  Receive Date: 20120404
  Receipt Date: 20120330
  Transmission Date: 20120825
  Serious: Yes (Death, Hospitalization)
  Sender: FDA-Public Use
  Company Number: US-GLAXOSMITHKLINE-A0928194A

PATIENT
  Age: 65 Year
  Sex: Male
  Weight: 111.8 kg

DRUGS (5)
  1. MICARDIS [Concomitant]
  2. TARKA [Concomitant]
  3. AVANDAMET [Suspect]
     Indication: DIABETES MELLITUS
     Dosage: 1TAB TWICE PER DAY
     Route: 048
     Dates: start: 20040101, end: 20060101
  4. CRESTOR [Concomitant]
  5. AVANDIA [Suspect]
     Indication: DIABETES MELLITUS
     Route: 048
     Dates: start: 20050521, end: 20060530

REACTIONS (1)
  - CARDIO-RESPIRATORY ARREST [None]
